FAERS Safety Report 5239805-6 (Version None)
Quarter: 2007Q1

REPORT INFORMATION
  Report Type: 
  Country: None (occurrence: None)
  Receive Date: 20070216
  Receipt Date: 20070208
  Transmission Date: 20070707
  Serious: Yes (Hospitalization)
  Sender: FDA-Public Use
  Company Number: US-ELI_LILLY_AND_COMPANY-US200701005069

PATIENT
  Age: 53 Year
  Sex: Female
  Weight: 106.12 kg

DRUGS (2)
  1. GEMZAR [Suspect]
     Indication: BREAST CANCER METASTATIC
     Dosage: 1000 MG/M2, UNK
     Route: 042
     Dates: start: 20061002, end: 20070111
  2. HERCEPTIN [Concomitant]
     Indication: BREAST CANCER METASTATIC
     Dosage: 200 MG, UNK
     Dates: start: 20060701

REACTIONS (1)
  - PANCREATITIS ACUTE [None]
